FAERS Safety Report 25015780 (Version 1)
Quarter: 2025Q1

REPORT INFORMATION
  Report Type: Spontaneous
  Country: US (occurrence: US)
  Receive Date: 20250227
  Receipt Date: 20250227
  Transmission Date: 20250409
  Serious: No
  Sender: BIONPHARMA INC.
  Company Number: US-Bion-014739

PATIENT
  Age: 84 Year
  Sex: Female

DRUGS (1)
  1. LOPERAMIDE HYDROCHLORIDE [Suspect]
     Active Substance: LOPERAMIDE HYDROCHLORIDE
     Indication: Diarrhoea
     Dates: start: 20250217

REACTIONS (6)
  - Illness [Unknown]
  - Vomiting [Unknown]
  - Body temperature increased [Unknown]
  - Overdose [Unknown]
  - Abdominal pain upper [Unknown]
  - Hypotension [Unknown]

NARRATIVE: CASE EVENT DATE: 20250219
